FAERS Safety Report 6892754-X (Version None)
Quarter: 2010Q3

REPORT INFORMATION
  Report Type: 
  Country: None (occurrence: None)
  Receive Date: 20100731
  Receipt Date: 20080905
  Transmission Date: 20110219
  Serious: No
  Sender: FDA-Public Use
  Company Number: US-PFIZER INC-2008074527

PATIENT
  Sex: Male
  Weight: 97.52 kg

DRUGS (2)
  1. DEPO-MEDROL [Suspect]
     Indication: HEADACHE
     Route: 008
     Dates: start: 20080801
  2. PAXIL [Concomitant]

REACTIONS (5)
  - DRUG INEFFECTIVE [None]
  - FEELING ABNORMAL [None]
  - HYPERHIDROSIS [None]
  - INSOMNIA [None]
  - VISION BLURRED [None]
